FAERS Safety Report 24529771 (Version 1)
Quarter: 2024Q4

REPORT INFORMATION
  Report Type: Spontaneous
  Country: FR (occurrence: FR)
  Receive Date: 20241021
  Receipt Date: 20241021
  Transmission Date: 20250115
  Serious: Yes (Death, Other)
  Sender: MERCK
  Company Number: None

PATIENT
  Age: 78 Year
  Sex: Male
  Weight: 60 kg

DRUGS (2)
  1. KEYTRUDA [Suspect]
     Active Substance: PEMBROLIZUMAB
     Indication: Adenocarcinoma of colon
     Dosage: 50 MILLIGRAM, CYCLICAL
     Route: 042
     Dates: start: 20240712, end: 20240712
  2. KEYTRUDA [Suspect]
     Active Substance: PEMBROLIZUMAB
     Dosage: 50 MILLIGRAM, CYCLICAL
     Route: 042
     Dates: start: 20240807, end: 20240807

REACTIONS (2)
  - Hepatic cytolysis [Fatal]
  - Myositis [Fatal]

NARRATIVE: CASE EVENT DATE: 20240801
